FAERS Safety Report 10082031 (Version 1)
Quarter: 2014Q2

REPORT INFORMATION
  Report Type: Spontaneous
  Country: US (occurrence: None)
  Receive Date: 20140408
  Receipt Date: 20140408
  Transmission Date: 20141212
  Serious: Yes (Other)
  Sender: FDA-Public Use
  Company Number: ADR-2014-00224

PATIENT
  Age: 14 Year
  Sex: Female

DRUGS (2)
  1. LIORESAL [Suspect]
     Indication: MUSCLE SPASTICITY
     Dosage: 1509 MCG/DAY
     Dates: start: 2009
  2. VITAMIN D3 [Suspect]
     Indication: MUSCLE SPASTICITY
     Dosage: 1509 MCG/DAY
     Dates: start: 2009

REACTIONS (4)
  - Injection site extravasation [None]
  - Dyskinesia [None]
  - Dystonia [None]
  - Cerebrospinal fluid leakage [None]
